FAERS Safety Report 5751845-7 (Version None)
Quarter: 2008Q2

REPORT INFORMATION
  Report Type: 
  Country: None (occurrence: None)
  Receive Date: 20080529
  Receipt Date: 20080428
  Transmission Date: 20081010
  Serious: No
  Sender: FDA-Public Use
  Company Number: US-BAYER-200822185NA

PATIENT
  Age: 71 Year
  Sex: Female
  Weight: 76 kg

DRUGS (9)
  1. MAGNEVIST [Suspect]
     Indication: NUCLEAR MAGNETIC RESONANCE IMAGING BRAIN
     Dosage: TOTAL DAILY DOSE: 20 ML
     Route: 042
     Dates: start: 20080414, end: 20080414
  2. ADULT SENIOR VITAMIN [Concomitant]
  3. LIPITOR [Concomitant]
  4. OMACOR [Concomitant]
  5. CLINDAGEL [Concomitant]
  6. BETIMOL [Concomitant]
  7. PATAROL [Concomitant]
  8. CALCIUM [Concomitant]
  9. ASPIRIN [Concomitant]

REACTIONS (1)
  - RASH PRURITIC [None]
